FAERS Safety Report 5017023-4 (Version None)
Quarter: 2006Q2

REPORT INFORMATION
  Report Type: 
  Country: None (occurrence: None)
  Receive Date: 20060526
  Receipt Date: 20060515
  Transmission Date: 20061013
  Serious: Yes (Death)
  Sender: FDA-Public Use
  Company Number: 2006S1000069

PATIENT
  Age: 69 Year
  Sex: Male
  Weight: 83.7 kg

DRUGS (17)
  1. CUBICIN [Suspect]
     Indication: STAPHYLOCOCCAL INFECTION
     Dosage: 400 MG;Q4H;IV
     Route: 042
     Dates: start: 20060308, end: 20060308
  2. RIFAMPIN [Concomitant]
  3. VANCOMYCIN [Concomitant]
  4. LEVOFLOXACIN [Concomitant]
  5. CEFTRIAXONE [Concomitant]
  6. TYLENOL (CAPLET) [Concomitant]
  7. AMIODARONE [Concomitant]
  8. CAPTOPRIL [Concomitant]
  9. MORPHINE [Concomitant]
  10. FENTANYL [Concomitant]
  11. INSULIN [Concomitant]
  12. MEMANTINE HCL [Concomitant]
  13. METOCLOPRAMIDE [Concomitant]
  14. BACTROBAN [Concomitant]
  15. PROMETHAZINE [Concomitant]
  16. RIVASTIGMINE [Concomitant]
  17. NONSTEROIDAL ANTI-INFLAMMATORY DRUGS [Concomitant]

REACTIONS (19)
  - ATRIAL FIBRILLATION [None]
  - ATRIAL FLUTTER [None]
  - BLOOD SODIUM INCREASED [None]
  - BLOOD UREA INCREASED [None]
  - BRADYCARDIA [None]
  - CARDIO-RESPIRATORY ARREST [None]
  - CONDITION AGGRAVATED [None]
  - DEMENTIA [None]
  - DYSPHAGIA [None]
  - ENDOCARDITIS [None]
  - HYPOTENSION [None]
  - INTERNATIONAL NORMALISED RATIO DECREASED [None]
  - RASH PUSTULAR [None]
  - RENAL FAILURE ACUTE [None]
  - RESPIRATORY FAILURE [None]
  - SEPTIC EMBOLUS [None]
  - SKIN LESION [None]
  - THROMBOCYTOPENIA [None]
  - WHITE BLOOD CELL COUNT INCREASED [None]
